FAERS Safety Report 22302271 (Version 1)
Quarter: 2023Q2

REPORT INFORMATION
  Report Type: Report from Study
  Country: DE (occurrence: DE)
  Receive Date: 20230510
  Receipt Date: 20230510
  Transmission Date: 20230721
  Serious: Yes (Other)
  Sender: FDA-Public Use
  Company Number: DE-MYLANLABS-2023M1044004

PATIENT
  Sex: Female

DRUGS (23)
  1. UNSPECIFIED INGREDIENT [Suspect]
     Active Substance: UNSPECIFIED INGREDIENT
     Indication: Product used for unknown indication
     Dosage: UNK, MATERNAL DOSE: UNK
     Route: 064
  2. METHOTREXATE [Suspect]
     Active Substance: METHOTREXATE
     Indication: Foetal exposure during pregnancy
     Dosage: MATERNAL DOSE: 15 MG ON 30 JUN 2011
     Route: 064
  3. METHOTREXATE [Suspect]
     Active Substance: METHOTREXATE
     Dosage: MATERNAL DOSE: 15 MG ON 04 SEP 2019
     Route: 064
  4. METHOTREXATE [Suspect]
     Active Substance: METHOTREXATE
     Dosage: MATERNAL DOSE: 20 MG ON 19 DEC 2012
     Route: 064
  5. METHOTREXATE [Suspect]
     Active Substance: METHOTREXATE
     Dosage: MATERNAL DOSE: 15 MG O 24 FEB 2011
     Route: 064
  6. METHOTREXATE [Suspect]
     Active Substance: METHOTREXATE
     Dosage: MATERNAL DOSE: 15 MG ON 26 MAR 2018
     Route: 064
  7. METHOTREXATE [Suspect]
     Active Substance: METHOTREXATE
     Dosage: MATERNAL DOSE: 25 MG ON 04 NOV 2013
     Route: 064
  8. METHOTREXATE [Suspect]
     Active Substance: METHOTREXATE
     Dosage: MATERNAL DOSE: 20 MG ON 26 MAR 2012
     Route: 064
  9. METHOTREXATE [Suspect]
     Active Substance: METHOTREXATE
     Dosage: MATERNAL DOSE: 15 MG ON 21 OCT 2014
     Route: 064
  10. METHOTREXATE [Suspect]
     Active Substance: METHOTREXATE
     Dosage: MATERNAL DOSE: 15 MG ON 17 SEP 2018
     Route: 064
  11. METHOTREXATE [Suspect]
     Active Substance: METHOTREXATE
     Dosage: MATERNAL DOSE: 25 MG ON 08 APR 2013
     Route: 064
  12. METHOTREXATE [Suspect]
     Active Substance: METHOTREXATE
     Dosage: MATERNAL DOSE: 25 MG ON 27 MAR 2017
     Route: 064
  13. METHOTREXATE [Suspect]
     Active Substance: METHOTREXATE
     Dosage: MATERNAL DOSE: 25 MG ON 03 MAR 2014
     Route: 064
  14. METHOTREXATE [Suspect]
     Active Substance: METHOTREXATE
     Dosage: MATERNAL DOSE: 15 MG ON 16 SEP 2010
     Route: 064
  15. METHOTREXATE [Suspect]
     Active Substance: METHOTREXATE
     Dosage: MATERNAL DOSE: 25 MG ON 27 OCT 2016
     Route: 064
  16. METHOTREXATE [Suspect]
     Active Substance: METHOTREXATE
     Dosage: MATERNAL DOSE: 7.5 MG ON 30 MAR 2020
     Route: 064
  17. METHOTREXATE [Suspect]
     Active Substance: METHOTREXATE
     Dosage: MATERNAL DOSE: 15 MG ON 07 MAR 2019
     Route: 064
  18. METHOTREXATE [Suspect]
     Active Substance: METHOTREXATE
     Dosage: MATERNAL DOSE: 25 MG ON 30 OCT 2017
     Route: 064
  19. TOCILIZUMAB [Suspect]
     Active Substance: TOCILIZUMAB
     Indication: Foetal exposure during pregnancy
     Dosage: MATERNAL DOSE: 480 MG ON NOV 2011 TO MAR 2014
     Route: 064
  20. TOCILIZUMAB [Suspect]
     Active Substance: TOCILIZUMAB
     Dosage: MATERNAL DOSE: 162 MG ON AN UNKNOWN DATE TO NOV 2019
     Route: 064
  21. TOCILIZUMAB [Suspect]
     Active Substance: TOCILIZUMAB
     Dosage: MATERNAL DOSE: 480 MG ON MAY 2016
     Route: 064
  22. TOCILIZUMAB [Suspect]
     Active Substance: TOCILIZUMAB
     Dosage: MATERNAL DOSE: 162 MG ON SEP 2020
     Route: 064
  23. SIMPONI [Suspect]
     Active Substance: GOLIMUMAB
     Indication: Foetal exposure during pregnancy
     Dosage: MATERNAL DOSE: 50 MG ON SEP 2010 TO NOV 2011
     Route: 064

REACTIONS (2)
  - Cerebral haemorrhage neonatal [Unknown]
  - Foetal exposure during pregnancy [Recovered/Resolved]

NARRATIVE: CASE EVENT DATE: 20160507
